FAERS Safety Report 26027979 (Version 1)
Quarter: 2025Q4

REPORT INFORMATION
  Report Type: Report from Study
  Country: US (occurrence: US)
  Receive Date: 20251111
  Receipt Date: 20251111
  Transmission Date: 20260117
  Serious: Yes (Hospitalization, Other)
  Sender: GILEAD
  Company Number: US-GILEAD-2025-0735207

PATIENT
  Age: 56 Year
  Sex: Male
  Weight: 79.7 kg

DRUGS (15)
  1. AMBRISENTAN [Suspect]
     Active Substance: AMBRISENTAN
     Indication: Pulmonary arterial hypertension
     Dosage: 1 TABLET BY MOUTH DAILY
     Route: 048
  2. TREPROSTINIL SODIUM [Suspect]
     Active Substance: TREPROSTINIL SODIUM
     Indication: Pulmonary arterial hypertension
     Dosage: 0.090 ?G/KG
     Route: 041
  3. TREPROSTINIL SODIUM [Suspect]
     Active Substance: TREPROSTINIL SODIUM
     Dosage: 0.007 UG/KG
     Route: 041
  4. TREPROSTINIL SODIUM [Suspect]
     Active Substance: TREPROSTINIL SODIUM
     Dosage: UNK UG/KG
     Route: 041
     Dates: start: 202104
  5. ADCIRCA [Suspect]
     Active Substance: TADALAFIL
     Indication: Pulmonary arterial hypertension
     Dosage: 20 MG [ 2 TABLETS BY MOUTH DALLY], QD, UNKNOWN
     Route: 048
  6. DUPIXENT [Suspect]
     Active Substance: DUPILUMAB
     Indication: Product used for unknown indication
     Dosage: UNK
     Route: 065
  7. FAMOTIDINE [Suspect]
     Active Substance: FAMOTIDINE
     Indication: Gastritis
     Dosage: 20 MG
     Route: 042
     Dates: start: 20250320
  8. PROTONIX [Suspect]
     Active Substance: PANTOPRAZOLE SODIUM
     Indication: Gastritis
     Dosage: 40 MG
     Route: 042
     Dates: start: 20250320
  9. OLOPATADINE HYDROCHLORIDE [Suspect]
     Active Substance: OLOPATADINE HYDROCHLORIDE
     Indication: Product used for unknown indication
     Dosage: UNK
     Route: 045
  10. XHANCE [Suspect]
     Active Substance: FLUTICASONE PROPIONATE
     Indication: Product used for unknown indication
     Dosage: UNK
     Route: 045
  11. CIPRO [Suspect]
     Active Substance: CIPROFLOXACIN HYDROCHLORIDE
     Indication: Gastritis
     Dosage: 500 MG, BID, ORAL USE
     Route: 048
     Dates: start: 20250311
  12. SERALUTINIB [Concomitant]
     Active Substance: SERALUTINIB
     Dosage: 15 MG
     Dates: start: 202503
  13. LASIX [Concomitant]
     Active Substance: FUROSEMIDE
  14. FERROUS SULFATE [Concomitant]
     Active Substance: FERROUS SULFATE
  15. TRELEGY ELLIPTA [Concomitant]
     Active Substance: FLUTICASONE FUROATE\UMECLIDINIUM BROMIDE\VILANTEROL TRIFENATATE

REACTIONS (27)
  - Gastritis [Recovering/Resolving]
  - Pneumonia aspiration [Unknown]
  - Corynebacterium sepsis [Unknown]
  - Hypoxia [Unknown]
  - Anaphylactic reaction [Recovered/Resolved]
  - Heart failure with preserved ejection fraction [Unknown]
  - Tricuspid valve thickening [Unknown]
  - Tricuspid valve incompetence [Unknown]
  - Pulmonary valve incompetence [Unknown]
  - Mitral valve incompetence [Unknown]
  - Mitral valve thickening [Unknown]
  - Neoplasm [Unknown]
  - Polyp [Unknown]
  - Rectal neoplasm [Unknown]
  - Aortic valve thickening [Unknown]
  - Aortic valve calcification [Unknown]
  - Pulmonary arterial pressure abnormal [Unknown]
  - Mitral valve calcification [Unknown]
  - Chest discomfort [Not Recovered/Not Resolved]
  - Pulmonary mass [Unknown]
  - Nasopharyngitis [Recovered/Resolved]
  - Diarrhoea [Unknown]
  - Rhinorrhoea [Unknown]
  - Blood gases [Unknown]
  - Hyperlactacidaemia [Unknown]
  - Therapy partial responder [Unknown]
  - Therapy non-responder [Unknown]
